FAERS Safety Report 7626928-7 (Version None)
Quarter: 2011Q3

REPORT INFORMATION
  Report Type: 
  Country: None (occurrence: None)
  Receive Date: 20110721
  Receipt Date: 20110713
  Transmission Date: 20111222
  Serious: Yes (Life-Threatening, Hospitalization, Other)
  Sender: FDA-Public Use
  Company Number: AT-ASTRAZENECA-2011SE43033

PATIENT

DRUGS (1)
  1. NAROPIN [Suspect]
     Route: 065

REACTIONS (1)
  - OVERDOSE [None]
